FAERS Safety Report 15949259 (Version 2)
Quarter: 2019Q1

REPORT INFORMATION
  Report Type: Report from Study
  Country: AE (occurrence: AE)
  Receive Date: 20190212
  Receipt Date: 20190226
  Transmission Date: 20190417
  Serious: Yes (Other)
  Sender: FDA-Public Use
  Company Number: AE-REGENERON PHARMACEUTICALS, INC.-2019-15905

PATIENT

DRUGS (1)
  1. EYLEA [Suspect]
     Active Substance: AFLIBERCEPT
     Indication: DIABETIC RETINAL OEDEMA
     Dosage: UNK, TOTAL EYLEA INJECTIONS TAKEN ARE 3 INJECTION
     Dates: start: 20180901

REACTIONS (2)
  - Intracranial pressure increased [Unknown]
  - Dry eye [Unknown]

NARRATIVE: CASE EVENT DATE: 201901
